FAERS Safety Report 7122904-1 (Version None)
Quarter: 2010Q4

REPORT INFORMATION
  Report Type: 
  Country: None (occurrence: None)
  Receive Date: 20101124
  Receipt Date: 20101115
  Transmission Date: 20110411
  Serious: Yes (Death)
  Sender: FDA-Public Use
  Company Number: ZA-GENENTECH-308217

PATIENT
  Sex: Male
  Weight: 83 kg

DRUGS (6)
  1. MABTHERA [Suspect]
     Indication: NON-HODGKIN'S LYMPHOMA RECURRENT
     Dosage: 550 MG, UNK
     Route: 050
     Dates: start: 20100810, end: 20100907
  2. BENDAMUSTINE [Suspect]
     Indication: PRODUCT USED FOR UNKNOWN INDICATION
     Dosage: 180 MG, UNK
     Route: 050
  3. WARFARIN [Concomitant]
     Indication: PULMONARY EMBOLISM
     Route: 048
  4. FOLAN [Concomitant]
     Indication: MEDICAL DIET
  5. SPIRACTIN [Concomitant]
     Indication: PRODUCT USED FOR UNKNOWN INDICATION
     Route: 048
  6. KYTRIL [Concomitant]
     Indication: NAUSEA
     Route: 048

REACTIONS (2)
  - AORTIC DISSECTION [None]
  - INTERSTITIAL LUNG DISEASE [None]
